FAERS Safety Report 20298574 (Version 2)
Quarter: 2022Q1

REPORT INFORMATION
  Report Type: Spontaneous
  Country: US (occurrence: US)
  Receive Date: 20220105
  Receipt Date: 20220217
  Transmission Date: 20220423
  Serious: No
  Sender: FDA-Public Use
  Company Number: US-GSKCCFUS-Case-01255763_AE-73517

PATIENT
  Sex: Female

DRUGS (1)
  1. FLOVENT HFA [Suspect]
     Active Substance: FLUTICASONE PROPIONATE
     Indication: Product used for unknown indication
     Dosage: 1 PUFF(S), BID, 110 MCG
     Route: 055
     Dates: start: 20200228

REACTIONS (4)
  - Overdose [Unknown]
  - Product dose omission issue [Unknown]
  - Underdose [Unknown]
  - Expired product administered [Unknown]
